FAERS Safety Report 9741983 (Version 1)
Quarter: 2013Q4

REPORT INFORMATION
  Report Type: Spontaneous
  Country: US (occurrence: US)
  Receive Date: 20131210
  Receipt Date: 20131210
  Transmission Date: 20140711
  Serious: Yes (Hospitalization)
  Sender: FDA-Public Use
  Company Number: US-TEVA-449940USA

PATIENT
  Age: 23 Year
  Sex: Female

DRUGS (4)
  1. FENTANYL [Suspect]
     Route: 048
  2. AMITRIPTYLINE [Suspect]
     Route: 048
  3. BENZODIAZEPINES [Suspect]
     Route: 048
  4. UNKNOWN DIETARY SUPPLEMENTS OR HOMEOPATHIC AGENTS [Suspect]
     Route: 048

REACTIONS (9)
  - Suicide attempt [Recovered/Resolved]
  - Agitation [Recovered/Resolved]
  - Irritability [Recovered/Resolved]
  - Confusional state [Recovered/Resolved]
  - Hallucination [Recovered/Resolved]
  - Delusion [Recovered/Resolved]
  - Hypotension [Recovered/Resolved]
  - Tachycardia [Recovered/Resolved]
  - Tremor [Recovered/Resolved]
